FAERS Safety Report 9679205 (Version 2)
Quarter: 2013Q4

REPORT INFORMATION
  Report Type: Spontaneous
  Country: FR (occurrence: FR)
  Receive Date: 20131108
  Receipt Date: 20131205
  Transmission Date: 20140711
  Serious: Yes (Other)
  Sender: FDA-Public Use
  Company Number: FR-ASTRAZENECA-2013SE81508

PATIENT
  Age: 26069 Day
  Sex: Male
  Weight: 75 kg

DRUGS (2)
  1. CRESTOR [Suspect]
     Indication: HYPERCHOLESTEROLAEMIA
     Route: 048
     Dates: start: 20130921, end: 20131006
  2. LISINOPRIL [Concomitant]
     Indication: HYPERTENSION
     Dates: start: 2005

REACTIONS (7)
  - Hyperaesthesia [Recovered/Resolved]
  - Malaise [Recovered/Resolved]
  - Fall [Recovered/Resolved]
  - Presyncope [Recovered/Resolved]
  - Muscle spasms [Recovered/Resolved]
  - Face injury [Unknown]
  - Head injury [Unknown]
